FAERS Safety Report 8029176-4 (Version None)
Quarter: 2012Q1

REPORT INFORMATION
  Report Type: 
  Country: None (occurrence: None)
  Receive Date: 20120106
  Receipt Date: 20120103
  Transmission Date: 20120608
  Serious: Yes (Other)
  Sender: FDA-Public Use
  Company Number: PHEH2011US05420

PATIENT
  Sex: Male
  Weight: 104.2 kg

DRUGS (2)
  1. GLEEVEC [Suspect]
     Dosage: 200 MG, DAILY
     Route: 048
     Dates: start: 20110909
  2. GLEEVEC [Suspect]
     Indication: CHRONIC MYELOID LEUKAEMIA
     Dosage: 100 MG, BID
     Route: 048
     Dates: start: 20110830

REACTIONS (4)
  - DRUG INEFFECTIVE [None]
  - SYSTEMIC MASTOCYTOSIS [None]
  - DIARRHOEA [None]
  - ABDOMINAL PAIN [None]
